FAERS Safety Report 11163679 (Version 1)
Quarter: 2015Q2

REPORT INFORMATION
  Report Type: Spontaneous
  Country: BR (occurrence: BR)
  Receive Date: 20150604
  Receipt Date: 20150604
  Transmission Date: 20150821
  Serious: Yes (Hospitalization)
  Sender: FDA-Public Use
  Company Number: BR-SA-2015SA076252

PATIENT
  Age: 5 Day
  Sex: Female
  Weight: 3.25 kg

DRUGS (2)
  1. CLEXANE [Suspect]
     Active Substance: ENOXAPARIN SODIUM
     Indication: MATERNAL EXPOSURE TIMING UNSPECIFIED
     Dosage: STOP DATE: UNTIL 20 DAYS AFTER DELIVERY?DOSE: 1 SYRINGE OF 40MG
     Route: 064
     Dates: start: 20141001, end: 2015
  2. AAS [Suspect]
     Active Substance: ASPIRIN
     Indication: MATERNAL EXPOSURE TIMING UNSPECIFIED
     Dosage: STRENGTH: 100MG
     Route: 064
     Dates: start: 20141001

REACTIONS (2)
  - Foetal exposure during pregnancy [Unknown]
  - Jaundice [Recovered/Resolved]

NARRATIVE: CASE EVENT DATE: 201504
